FAERS Safety Report 5202804-4 (Version None)
Quarter: 2007Q1

REPORT INFORMATION
  Report Type: 
  Country: None (occurrence: None)
  Receive Date: 20070109
  Receipt Date: 20070103
  Transmission Date: 20070707
  Serious: Yes (Other)
  Sender: FDA-Public Use
  Company Number: US-PFIZER INC-2007001750

PATIENT
  Sex: Male

DRUGS (7)
  1. LIPITOR [Suspect]
  2. AVELOX [Concomitant]
  3. BIAXIN [Concomitant]
     Indication: SINUSITIS
  4. PRINIVIL [Concomitant]
  5. ASPIRIN [Concomitant]
  6. FISH OIL [Concomitant]
  7. VALSARTAN [Concomitant]

REACTIONS (3)
  - MYALGIA [None]
  - SINUSITIS [None]
  - VASCULAR BYPASS GRAFT [None]
